FAERS Safety Report 7436600-4 (Version None)
Quarter: 2011Q2

REPORT INFORMATION
  Report Type: 
  Country: None (occurrence: None)
  Receive Date: 20110418
  Receipt Date: 20110220
  Transmission Date: 20111010
  Serious: Yes (Death, Other)
  Sender: FDA-Public Use
  Company Number: 2011001064

PATIENT
  Age: 53 Year
  Sex: Male

DRUGS (2)
  1. NOVALGINA (METAMIZOLE SODDIUM) [Concomitant]
  2. TARCEVA [Suspect]
     Indication: NEOPLASM MALIGNANT
     Dosage: (150 MG,QD),ORAL
     Dates: start: 20090801, end: 20110214

REACTIONS (4)
  - MALIGNANT MEDIASTINAL NEOPLASM [None]
  - LUNG NEOPLASM MALIGNANT [None]
  - DISEASE PROGRESSION [None]
  - RESPIRATORY FAILURE [None]
